FAERS Safety Report 5986063-0 (Version None)
Quarter: 2008Q4

REPORT INFORMATION
  Report Type: 
  Country: None (occurrence: None)
  Receive Date: 20081205
  Receipt Date: 20081205
  Transmission Date: 20090506
  Serious: Yes (Disabling, Other)
  Sender: FDA-Public Use
  Company Number: None

PATIENT
  Age: 16 Year
  Sex: Male
  Weight: 122.4712 kg

DRUGS (1)
  1. CITALOPRAM HYDROBROMIDE [Suspect]
     Indication: DEPRESSION
     Dates: start: 20050501, end: 20081203

REACTIONS (5)
  - AVULSION FRACTURE [None]
  - EPIPHYSEAL FRACTURE [None]
  - FOOT FRACTURE [None]
  - GROWTH ACCELERATED [None]
  - HIP FRACTURE [None]
